FAERS Safety Report 15964774 (Version 1)
Quarter: 2019Q1

REPORT INFORMATION
  Report Type: Report from Study
  Country: None (occurrence: CL)
  Receive Date: 20190215
  Receipt Date: 20190215
  Transmission Date: 20190418
  Serious: Yes (Hospitalization)
  Sender: FDA-Public Use
  Company Number: CL-ABBVIE-19K-034-2665730-00

PATIENT
  Age: 55 Year
  Sex: Female

DRUGS (1)
  1. HUMIRA [Suspect]
     Active Substance: ADALIMUMAB
     Indication: RHEUMATOID ARTHRITIS
     Route: 058
     Dates: start: 20181029

REACTIONS (7)
  - Joint dislocation [Recovering/Resolving]
  - Medical device site haemorrhage [Unknown]
  - Pain [Recovering/Resolving]
  - Joint dislocation [Recovering/Resolving]
  - Device loosening [Unknown]
  - Medical device site swelling [Unknown]
  - Fall [Unknown]

NARRATIVE: CASE EVENT DATE: 201812
